FAERS Safety Report 20340882 (Version 2)
Quarter: 2022Q1

REPORT INFORMATION
  Report Type: Spontaneous
  Country: EG (occurrence: EG)
  Receive Date: 20220117
  Receipt Date: 20220311
  Transmission Date: 20220423
  Serious: Yes (Other)
  Sender: FDA-Public Use
  Company Number: EG-PFIZER INC-202200030955

PATIENT
  Age: 73 Year
  Sex: Female

DRUGS (1)
  1. IBRANCE [Suspect]
     Active Substance: PALBOCICLIB
     Indication: Breast cancer metastatic
     Dosage: ONCE DAILY TAKEN WITH FOOD FOR 21 DAYS  FOLLOWED BY 7 DAYS OFF TREATMENT
     Route: 048
     Dates: start: 20211001, end: 20220228

REACTIONS (2)
  - Myocardial infarction [Unknown]
  - Angina pectoris [Unknown]
